FAERS Safety Report 8866260 (Version 2)
Quarter: 2012Q4

REPORT INFORMATION
  Report Type: 
  Country: BR (occurrence: BR)
  Receive Date: 20121025
  Receipt Date: 20121214
  Transmission Date: 20130627
  Serious: Yes (Hospitalization)
  Sender: FDA-Public Use
  Company Number: BR-ELI_LILLY_AND_COMPANY-BR201210005099

PATIENT
  Sex: Female
  Weight: 60 kg

DRUGS (4)
  1. FORTEO [Suspect]
     Indication: OSTEOPOROSIS
     Dosage: 20 ug, qd
     Route: 058
     Dates: start: 201207, end: 201209
  2. ANTIINFLAMMATORY AGENTS [Concomitant]
     Dosage: UNK, unknown
     Route: 065
  3. CORTICOSTEROIDS [Concomitant]
     Dosage: UNK, unknown
     Route: 065
  4. DIOVAN [Concomitant]
     Indication: BLOOD PRESSURE
     Dosage: UNK, unknown
     Route: 065

REACTIONS (5)
  - Lymphadenopathy [Recovering/Resolving]
  - Abscess [Recovering/Resolving]
  - Erythema [Recovering/Resolving]
  - Feeling hot [Recovering/Resolving]
  - Drug dose omission [Unknown]
